FAERS Safety Report 10216523 (Version 2)
Quarter: 2014Q3

REPORT INFORMATION
  Report Type: Spontaneous
  Country: PT (occurrence: PT)
  Receive Date: 20140604
  Receipt Date: 20140717
  Transmission Date: 20150326
  Serious: Yes (Other)
  Sender: FDA-Public Use
  Company Number: PT-TEVA-484177ISR

PATIENT
  Sex: Female
  Weight: 60 kg

DRUGS (1)
  1. AMOXICILINA + ACIDO CLAVULANICO RATIOPHARM [Suspect]
     Active Substance: AMOXICILLIN\CLAVULANIC ACID
     Indication: INFECTION
     Dosage: EACH 12 HOURS
     Route: 048

REACTIONS (4)
  - Confusional state [Recovered/Resolved]
  - Hyperhidrosis [Recovered/Resolved]
  - Acne [Recovered/Resolved]
  - Blister [Recovered/Resolved]
